FAERS Safety Report 6227045-3 (Version None)
Quarter: 2009Q2

REPORT INFORMATION
  Report Type: 
  Country: None (occurrence: None)
  Receive Date: 20090612
  Receipt Date: 20090527
  Transmission Date: 20091009
  Serious: No
  Sender: FDA-Public Use
  Company Number: US-ABBOTT-09P-163-0575937-00

PATIENT
  Sex: Female
  Weight: 68.1 kg

DRUGS (3)
  1. HUMIRA [Suspect]
     Indication: PSORIASIS
     Route: 058
     Dates: start: 20070101
  2. AMBIEN [Concomitant]
     Indication: INSOMNIA
  3. UNKNOWN OINTMENT [Concomitant]
     Indication: PSORIASIS

REACTIONS (1)
  - DRUG DOSE OMISSION [None]
